FAERS Safety Report 23405319 (Version 8)
Quarter: 2025Q1

REPORT INFORMATION
  Report Type: Spontaneous
  Country: BR (occurrence: BR)
  Receive Date: 20240116
  Receipt Date: 20250122
  Transmission Date: 20250408
  Serious: Yes (Other)
  Sender: SANDOZ
  Company Number: BR-002147023-NVSC2023BR231597

PATIENT
  Sex: Male
  Weight: 86 kg

DRUGS (9)
  1. METHYLPHENIDATE HYDROCHLORIDE [Suspect]
     Active Substance: METHYLPHENIDATE HYDROCHLORIDE
     Indication: Narcolepsy
     Route: 065
  2. METHYLPHENIDATE HYDROCHLORIDE [Suspect]
     Active Substance: METHYLPHENIDATE HYDROCHLORIDE
     Indication: Cerebral disorder
     Route: 048
     Dates: start: 2021
  3. METHYLPHENIDATE HYDROCHLORIDE [Suspect]
     Active Substance: METHYLPHENIDATE HYDROCHLORIDE
     Indication: Attention deficit hyperactivity disorder
     Route: 065
     Dates: start: 2018
  4. METHYLPHENIDATE HYDROCHLORIDE [Suspect]
     Active Substance: METHYLPHENIDATE HYDROCHLORIDE
     Indication: Cerebral palsy
  5. METHYLPHENIDATE HYDROCHLORIDE [Suspect]
     Active Substance: METHYLPHENIDATE HYDROCHLORIDE
     Indication: Depression
  6. METHYLPHENIDATE HYDROCHLORIDE [Suspect]
     Active Substance: METHYLPHENIDATE HYDROCHLORIDE
     Indication: Generalised anxiety disorder
  7. METHYLPHENIDATE HYDROCHLORIDE [Suspect]
     Active Substance: METHYLPHENIDATE HYDROCHLORIDE
     Indication: Panic disorder
  8. METHYLPHENIDATE HYDROCHLORIDE [Suspect]
     Active Substance: METHYLPHENIDATE HYDROCHLORIDE
     Indication: Schizophrenia
  9. LORAZEPAM [Concomitant]
     Active Substance: LORAZEPAM
     Indication: Anxiety
     Dosage: UNK, QD, BID (1 TABLET IN THE MORNING AND 1 TABLET AT NIGHT, 2 MONTHS)
     Route: 048

REACTIONS (15)
  - Eating disorder [Not Recovered/Not Resolved]
  - Amnesia [Recovering/Resolving]
  - Syncope [Not Recovered/Not Resolved]
  - Encephalopathy [Recovering/Resolving]
  - Malaise [Recovering/Resolving]
  - Seizure [Not Recovered/Not Resolved]
  - Muscle spasms [Unknown]
  - Product dose omission issue [Not Recovered/Not Resolved]
  - Emotional distress [Unknown]
  - Condition aggravated [Unknown]
  - Dissociative identity disorder [Recovering/Resolving]
  - Blood pressure abnormal [Recovered/Resolved]
  - Depression [Not Recovered/Not Resolved]
  - Product availability issue [Unknown]
  - Product use in unapproved indication [Unknown]
